FAERS Safety Report 12434312 (Version 2)
Quarter: 2016Q3

REPORT INFORMATION
  Report Type: Spontaneous
  Country: US (occurrence: US)
  Receive Date: 20160603
  Receipt Date: 20160725
  Transmission Date: 20161109
  Serious: Yes (Other)
  Sender: FDA-Public Use
  Company Number: US-BRISTOL-MYERS SQUIBB COMPANY-BMS-2016-042229

PATIENT
  Age: 79 Year
  Sex: Female
  Weight: 81.6 kg

DRUGS (1)
  1. ELIQUIS [Suspect]
     Active Substance: APIXABAN
     Indication: CEREBROVASCULAR ACCIDENT PROPHYLAXIS
     Dosage: 5 MG, BID
     Route: 048
     Dates: start: 20150818

REACTIONS (5)
  - Flushing [Recovering/Resolving]
  - Atrial fibrillation [Unknown]
  - Hyperhidrosis [Recovered/Resolved]
  - Feeling hot [Recovering/Resolving]
  - Cardioversion [Unknown]

NARRATIVE: CASE EVENT DATE: 20160506
